FAERS Safety Report 6717765-6 (Version None)
Quarter: 2010Q2

REPORT INFORMATION
  Report Type: 
  Country: None (occurrence: None)
  Receive Date: 20100510
  Receipt Date: 20100430
  Transmission Date: 20101027
  Serious: Yes (Hospitalization)
  Sender: FDA-Public Use
  Company Number: GXKR2010IT04916

PATIENT
  Age: 58 Year
  Sex: Male

DRUGS (4)
  1. OXALIPLATIN [Suspect]
     Indication: RECTAL CANCER
     Route: 065
  2. FOLINIC ACID [Concomitant]
     Indication: RECTAL CANCER
     Route: 065
  3. CETUXIMAB [Suspect]
     Indication: RECTAL CANCER
     Route: 065
  4. TEGAFUR URACIL [Suspect]
     Indication: RECTAL CANCER
     Route: 065

REACTIONS (17)
  - ABDOMINAL PAIN [None]
  - CHILLS [None]
  - DEHYDRATION [None]
  - DIARRHOEA [None]
  - HYPOTENSION [None]
  - ILEOCOLOSTOMY [None]
  - INTESTINAL ANASTOMOSIS [None]
  - INTESTINAL RESECTION [None]
  - JEJUNAL PERFORATION [None]
  - LAPAROTOMY [None]
  - MENTAL DISORDER [None]
  - MUCOSAL INFLAMMATION [None]
  - OLIGURIA [None]
  - PERITONITIS [None]
  - PNEUMATOSIS INTESTINALIS [None]
  - PORTAL VENOUS GAS [None]
  - WOUND DRAINAGE [None]
